FAERS Safety Report 7978129-0 (Version None)
Quarter: 2011Q4

REPORT INFORMATION
  Report Type: 
  Country: None (occurrence: None)
  Receive Date: 20111212
  Receipt Date: 20111212
  Transmission Date: 20120403
  Serious: Yes (Hospitalization)
  Sender: FDA-Public Use
  Company Number: None

PATIENT
  Age: 54 Year
  Sex: Male
  Weight: 118.4 kg

DRUGS (1)
  1. ASPIRIN [Suspect]
     Indication: CHEST PAIN
     Dosage: 325 MG ONCE PO
     Route: 048
     Dates: start: 20111120, end: 20111120

REACTIONS (1)
  - ANGIOEDEMA [None]
